FAERS Safety Report 9398090 (Version 2)
Quarter: 2014Q3

REPORT INFORMATION
  Report Type: Spontaneous
  Country: US (occurrence: US)
  Receive Date: 20130712
  Receipt Date: 20140711
  Transmission Date: 20150326
  Serious: No
  Sender: FDA-Public Use
  Company Number: US-GLAXOSMITHKLINE-A0981164A

PATIENT
  Age: 51 Year
  Sex: Female

DRUGS (1)
  1. FLOVENT [Suspect]
     Active Substance: FLUTICASONE PROPIONATE
     Indication: ASTHMA
     Dosage: 220MCG UNKNOWN
     Route: 055
     Dates: start: 20030101

REACTIONS (5)
  - Malaise [Unknown]
  - Aphonia [Unknown]
  - Product quality issue [Unknown]
  - Drug ineffective [Unknown]
  - Inhalation therapy [Unknown]
